FAERS Safety Report 11825082 (Version 1)
Quarter: 2015Q4

REPORT INFORMATION
  Report Type: Report from Study
  Country: US (occurrence: US)
  Receive Date: 20151211
  Receipt Date: 20151211
  Transmission Date: 20160305
  Serious: Yes (Hospitalization, Other)
  Sender: FDA-Public Use
  Company Number: US-ABBVIE-15K-163-1513780-00

PATIENT
  Age: 71 Year
  Sex: Male
  Weight: 75.82 kg

DRUGS (5)
  1. HUMIRA [Suspect]
     Active Substance: ADALIMUMAB
     Indication: PSORIASIS
     Route: 058
     Dates: end: 201508
  2. METOPROLOL [Concomitant]
     Active Substance: METOPROLOL
     Indication: HYPERTENSION
  3. HUMIRA [Suspect]
     Active Substance: ADALIMUMAB
     Route: 058
     Dates: start: 201511
  4. AMLODIPINE [Concomitant]
     Active Substance: AMLODIPINE BESYLATE
     Indication: HYPERTENSION
  5. HYDROCODONE [Concomitant]
     Active Substance: HYDROCODONE
     Indication: POSTOPERATIVE ANALGESIA

REACTIONS (2)
  - Intervertebral disc protrusion [Recovering/Resolving]
  - Abasia [Recovering/Resolving]

NARRATIVE: CASE EVENT DATE: 201506
